FAERS Safety Report 7386510-6 (Version None)
Quarter: 2011Q1

REPORT INFORMATION
  Report Type: 
  Country: None (occurrence: None)
  Receive Date: 20110331
  Receipt Date: 20110323
  Transmission Date: 20110831
  Serious: Yes (Death, Other)
  Sender: FDA-Public Use
  Company Number: JP-ROCHE-530593

PATIENT
  Sex: Male
  Weight: 53.7 kg

DRUGS (9)
  1. METHOXY POLYETHYLENE GLYCOL-EPOETIN BETA [Suspect]
     Route: 042
     Dates: start: 20071030, end: 20071030
  2. ZYLORIC [Concomitant]
     Route: 048
     Dates: start: 20030812
  3. GLUMAL [Concomitant]
     Dosage: FORM: GRANULATED POWDER.
     Route: 048
     Dates: start: 20070115
  4. MICARDIS [Concomitant]
     Route: 048
     Dates: start: 20030812
  5. CONIEL [Concomitant]
     Dosage: DRUG REPORTED AS BENIDIPINE HYDROCHLORIDE.
     Route: 048
     Dates: start: 20030812
  6. METHOXY POLYETHYLENE GLYCOL-EPOETIN BETA [Suspect]
     Route: 042
     Dates: start: 20070807, end: 20071002
  7. DOXAZOSIN MESYLATE [Concomitant]
     Dosage: DRUG NAME: CARDENALIN.
     Route: 048
     Dates: start: 20030812
  8. ARTIST [Concomitant]
     Route: 048
     Dates: start: 20030812
  9. PROTECADIN [Concomitant]
     Dosage: DRUG REPORTED AS PROTECADIN(LAFUTIDINE)
     Route: 048
     Dates: start: 20070115

REACTIONS (2)
  - LUNG NEOPLASM MALIGNANT [None]
  - LUNG CARCINOMA CELL TYPE UNSPECIFIED RECURRENT [None]
